FAERS Safety Report 9841329 (Version 1)
Quarter: 2013Q4

REPORT INFORMATION
  Report Type: Spontaneous
  Country: US (occurrence: None)
  Receive Date: 20131219
  Receipt Date: 20131219
  Transmission Date: 20140711
  Serious: Yes (Hospitalization)
  Sender: FDA-Public Use
  Company Number: 163-20785-10051009

PATIENT
  Age: 48 Year
  Sex: Male

DRUGS (8)
  1. THALOMID [Suspect]
     Indication: PLASMA CELL MYELOMA
     Dosage: 200 MG, 1 IN 1 D, PO
     Route: 048
     Dates: start: 20050208, end: 20050520
  2. PREVACID (LANSOPRZOLE) (UNKNOWN) [Concomitant]
  3. RHINOCORT (BUDESONIDE) (UNKNOWN) [Concomitant]
  4. LIPITOR (ATORVASTATIN) (UNKNOWN) [Concomitant]
  5. GLUCOTROL (GLIPIZIDE) (UNKNOWN) [Concomitant]
  6. GLUCOPHAGE (METFORMIN HYDROCHLORIDE) (UNKNOWN) [Concomitant]
  7. VICODIN (VICODIN) (UNKNOWN) [Concomitant]
  8. ZYRTEC (CETIRIZINE HYDROCHLORIDE) (UNKNOWN) [Concomitant]

REACTIONS (1)
  - Pulmonary embolism [None]
